FAERS Safety Report 9030837 (Version 1)
Quarter: 2013Q1

REPORT INFORMATION
  Report Type: Spontaneous
  Country: FR (occurrence: FR)
  Receive Date: 20130123
  Receipt Date: 20130123
  Transmission Date: 20140127
  Serious: Yes (Hospitalization)
  Sender: FDA-Public Use
  Company Number: FR-ASTRAZENECA-2013SE03684

PATIENT
  Age: 8260 Day
  Sex: Female

DRUGS (7)
  1. INEXIUM [Suspect]
     Route: 048
     Dates: start: 20090723, end: 20090804
  2. VFEND [Suspect]
     Route: 048
     Dates: start: 20090728, end: 20090803
  3. SOLUMEDROL [Suspect]
     Route: 042
     Dates: start: 20090723, end: 20090730
  4. CLAVENTIN [Concomitant]
     Route: 042
     Dates: start: 20090722, end: 20090802
  5. MORPHINE [Concomitant]
     Route: 042
     Dates: start: 20090722, end: 20090804
  6. TRANXENE [Concomitant]
     Route: 042
     Dates: start: 20090723, end: 20090803
  7. ACUPAN [Concomitant]
     Route: 042
     Dates: start: 20090722, end: 20090805

REACTIONS (1)
  - Hepatocellular injury [Not Recovered/Not Resolved]
